FAERS Safety Report 5489372-7 (Version None)
Quarter: 2007Q4

REPORT INFORMATION
  Report Type: 
  Country: None (occurrence: None)
  Receive Date: 20071018
  Receipt Date: 20071005
  Transmission Date: 20080405
  Serious: Yes (Disabling, Other)
  Sender: FDA-Public Use
  Company Number: GB-ASTRAZENECA-2004GB02339

PATIENT
  Age: 605 Month
  Sex: Male

DRUGS (8)
  1. CRESTOR [Suspect]
     Route: 048
     Dates: start: 20040105, end: 20040514
  2. ATORVASTATIN CALCIUM [Suspect]
     Route: 048
     Dates: start: 20021118, end: 20040101
  3. CERIVASTATIN [Suspect]
     Route: 048
     Dates: start: 20000503, end: 20010828
  4. FENOFIBRATE [Suspect]
     Route: 048
     Dates: start: 20000322, end: 20000801
  5. CALCIPOTRIENE [Concomitant]
     Indication: ECZEMA
     Dosage: 50 MICROGRAMS PER GRAM
  6. GLICLAZIDE [Concomitant]
     Indication: DIABETES MELLITUS
     Dates: start: 19970801
  7. GLICLAZIDE [Concomitant]
     Route: 048
     Dates: start: 20000504, end: 20040413
  8. SULFASALAZINE [Concomitant]
     Indication: PSORIATIC ARTHROPATHY
     Route: 048
     Dates: end: 20040304

REACTIONS (25)
  - ARTHRALGIA [None]
  - BALANCE DISORDER [None]
  - CARPAL TUNNEL SYNDROME [None]
  - CONJUNCTIVITIS ALLERGIC [None]
  - DIABETES MELLITUS [None]
  - DYSGEUSIA [None]
  - DYSKINESIA [None]
  - ECZEMA [None]
  - FEELING COLD [None]
  - HAEMORRHAGE [None]
  - HEPATOCELLULAR DAMAGE [None]
  - ILL-DEFINED DISORDER [None]
  - MUSCLE ATROPHY [None]
  - MYALGIA [None]
  - NASOPHARYNGITIS [None]
  - OCULAR HYPERAEMIA [None]
  - PSORIASIS [None]
  - PSORIATIC ARTHROPATHY [None]
  - PYREXIA [None]
  - RHINORRHOEA [None]
  - SLEEP DISORDER [None]
  - SPEECH DISORDER [None]
  - TREMOR [None]
  - WEIGHT DECREASED [None]
  - WHEEZING [None]
